FAERS Safety Report 24589852 (Version 3)
Quarter: 2024Q4

REPORT INFORMATION
  Report Type: Spontaneous
  Country: JP (occurrence: JP)
  Receive Date: 20241107
  Receipt Date: 20241126
  Transmission Date: 20250115
  Serious: Yes (Death, Other)
  Sender: BRISTOL-MYERS SQUIBB COMPANY
  Company Number: JP-BRISTOL-MYERS SQUIBB COMPANY-2024-173630

PATIENT
  Age: 70 Year
  Sex: Female

DRUGS (2)
  1. VIDAZA [Suspect]
     Active Substance: AZACITIDINE
     Indication: Chronic myelomonocytic leukaemia
     Dosage: 16 COURSES
     Route: 042
  2. PREDNISOLONE [Suspect]
     Active Substance: PREDNISOLONE
     Indication: Chronic myelomonocytic leukaemia
     Dosage: 16 COURSES

REACTIONS (1)
  - Acute myeloid leukaemia [Fatal]
